FAERS Safety Report 9225242 (Version 1)
Quarter: 2013Q2

REPORT INFORMATION
  Report Type: Spontaneous
  Country: US (occurrence: None)
  Receive Date: 20130410
  Receipt Date: 20130410
  Transmission Date: 20140414
  Serious: Yes (Life-Threatening, Hospitalization)
  Sender: FDA-Public Use
  Company Number: None

PATIENT
  Age: 75 Year
  Sex: Female
  Weight: 72.58 kg

DRUGS (3)
  1. DUREZOL [Suspect]
     Indication: POSTOPERATIVE CARE
     Dosage: 1 GTT BID OPHTHALMIC
     Route: 047
     Dates: start: 20130401, end: 20130408
  2. ZYMAXIDE [Concomitant]
  3. BROMDAY [Concomitant]

REACTIONS (1)
  - Drug hypersensitivity [None]
